FAERS Safety Report 20874462 (Version 1)
Quarter: 2022Q2

REPORT INFORMATION
  Report Type: Report from Study
  Country: CN (occurrence: CN)
  Receive Date: 20220525
  Receipt Date: 20220525
  Transmission Date: 20220721
  Serious: Yes (Death, Hospitalization, Other)
  Sender: FDA-Public Use
  Company Number: CN-BRISTOL-MYERS SQUIBB COMPANY-BMS-2021-020884

PATIENT
  Age: 65 Year
  Sex: Male
  Weight: 57.5 kg

DRUGS (12)
  1. OXALIPLATIN [Suspect]
     Active Substance: OXALIPLATIN
     Indication: Gastric cancer
     Dosage: MOST RECENT DOSE ON 03-DEC-2020
     Route: 065
     Dates: start: 20200902
  2. CAPECITABINE [Suspect]
     Active Substance: CAPECITABINE
     Indication: Gastric cancer
     Dosage: MOST RECENT DOSE ON 09-FEB-2021
     Route: 065
     Dates: start: 20200902
  3. METOPROLOL SUCCINATE [Concomitant]
     Active Substance: METOPROLOL SUCCINATE
     Indication: Angina pectoris
     Dosage: ONCE
     Route: 048
     Dates: start: 20210305, end: 20210305
  4. ENTERAL NUTRITIONAL (TP-MCT) [Concomitant]
     Indication: Nutritional supplementation
     Dosage: 1 DF- 2 BOTTLES ; ONCE
     Route: 048
     Dates: start: 20210305, end: 20210305
  5. ENTERAL NUTRITIONAL (TP-MCT) [Concomitant]
     Dosage: 1 DF- 2 BOTTLES ; ONCE
     Route: 048
     Dates: start: 20210306, end: 20210306
  6. METOCLOPRAMIDE HYDROCHLORIDE [Concomitant]
     Active Substance: METOCLOPRAMIDE HYDROCHLORIDE
     Indication: Vomiting
     Dosage: ONCE
     Route: 030
     Dates: start: 20210305, end: 20210305
  7. METOCLOPRAMIDE HYDROCHLORIDE [Concomitant]
     Active Substance: METOCLOPRAMIDE HYDROCHLORIDE
     Dosage: ONCE
     Route: 030
     Dates: start: 20210312, end: 20210312
  8. HEPARIN SODIUM [Concomitant]
     Active Substance: HEPARIN SODIUM
     Indication: Prophylaxis
     Dosage: 1 DF- 12500 UNITS?ONCE?ROUTE: EXT?FOR INFUSION PORT PLACEMENT
     Route: 050
     Dates: start: 20210311, end: 20210311
  9. TAMSULOSIN HYDROCHLORIDE [Concomitant]
     Active Substance: TAMSULOSIN HYDROCHLORIDE
     Indication: Dysuria
     Dosage: ONCE ?SUSTAINED RELEASE
     Route: 048
     Dates: start: 20210309, end: 20210309
  10. OPRELVEKIN [Concomitant]
     Active Substance: OPRELVEKIN
     Indication: Platelet count increased
     Dosage: BID?ROUTE: HD
     Route: 050
     Dates: start: 20210311, end: 20210311
  11. GRANULOCYTE COLONY-STIMULATING FACTOR NOS [Concomitant]
     Active Substance: GRANULOCYTE COLONY-STIMULATING FACTOR NOS
     Indication: White blood cell count increased
     Dosage: QD?ROUTE: HD
     Route: 050
     Dates: start: 20210313, end: 20210316
  12. GRANULOCYTE COLONY-STIMULATING FACTOR NOS [Concomitant]
     Active Substance: GRANULOCYTE COLONY-STIMULATING FACTOR NOS
     Indication: Neutrophil count increased

REACTIONS (2)
  - Multiple organ dysfunction syndrome [Fatal]
  - Pain [Not Recovered/Not Resolved]

NARRATIVE: CASE EVENT DATE: 20210226
